FAERS Safety Report 4661880-8 (Version None)
Quarter: 2005Q2

REPORT INFORMATION
  Report Type: 
  Country: None (occurrence: None)
  Receive Date: 20050513
  Receipt Date: 20050510
  Transmission Date: 20051028
  Serious: Yes (Hospitalization)
  Sender: FDA-Public Use
  Company Number: AU-MERCK-0505AUS00094

PATIENT
  Age: 80 Year
  Sex: Female

DRUGS (4)
  1. TIMOPTIC [Suspect]
     Indication: GLAUCOMA
     Route: 047
     Dates: end: 20040916
  2. VERAPAMIL HYDROCHLORIDE [Suspect]
     Indication: ESSENTIAL HYPERTENSION
     Route: 048
     Dates: end: 20040916
  3. LEVOTHYROXINE SODIUM [Concomitant]
     Indication: HYPOTHYROIDISM
     Route: 048
  4. NITROGLYCERIN [Concomitant]
     Indication: ANGINA PECTORIS
     Route: 061
     Dates: start: 20040418

REACTIONS (5)
  - ATRIOVENTRICULAR BLOCK SECOND DEGREE [None]
  - BRADYCARDIA [None]
  - DRUG INTERACTION [None]
  - DYSPNOEA [None]
  - EXERCISE TOLERANCE DECREASED [None]
